FAERS Safety Report 8362337-3 (Version None)
Quarter: 2012Q2

REPORT INFORMATION
  Report Type: 
  Country: None (occurrence: None)
  Receive Date: 20120516
  Receipt Date: 20120507
  Transmission Date: 20120825
  Serious: Yes (Death, Other)
  Sender: FDA-Public Use
  Company Number: DK-BRISTOL-MYERS SQUIBB COMPANY-16446841

PATIENT
  Age: 79 Year
  Sex: Female

DRUGS (17)
  1. MABTHERA [Suspect]
     Indication: DIFFUSE LARGE B-CELL LYMPHOMA
     Dosage: DOSIS: DOSERES EFTER KURSKEMA HVER 3. UGE
     Route: 042
     Dates: start: 20110125, end: 20110501
  2. PREDNISOLONE [Suspect]
     Indication: DIFFUSE LARGE B-CELL LYMPHOMA
     Dosage: DOSIS: DOSERES EFTER KURSKEMA HVER 3. UGE,
     Route: 042
     Dates: start: 20110125, end: 20110501
  3. LASOPRAZOLE [Concomitant]
     Indication: GASTROOESOPHAGEAL REFLUX DISEASE
  4. PERINDOPRIL ERBUMINE [Concomitant]
     Indication: HYPERTENSION
  5. CITALOPRAM HYDROBROMIDE [Concomitant]
     Indication: DEPRESSION
  6. RASBURICASE [Concomitant]
     Dates: start: 20120124, end: 20120124
  7. WARFARIN SODIUM [Concomitant]
  8. FUROSEMIDE [Concomitant]
     Indication: DIURETIC THERAPY
  9. PIVMECILLINAM HCL [Concomitant]
     Indication: CYSTITIS
     Dosage: TRADE: PENOMAX
     Dates: start: 20120129
  10. CYCLOPHOSPHAMIDE [Suspect]
     Indication: DIFFUSE LARGE B-CELL LYMPHOMA
     Dosage: DOSIS: DOSERES EFTER KURSKEMA HVER 3. UGE
     Route: 042
     Dates: start: 20110125, end: 20110501
  11. BISOPROLOL FUMARATE [Concomitant]
     Indication: HYPERTENSION
  12. SYMBICORT [Concomitant]
     Dosage: TURBOHALER
  13. CODEINE SULFATE [Concomitant]
     Indication: ANALGESIC THERAPY
  14. ETOPOSIDE [Suspect]
     Indication: DIFFUSE LARGE B-CELL LYMPHOMA
     Dosage: DOSIS: DOSERES EFTER KURSKEMA HVER 3. UGE
     Route: 042
     Dates: start: 20110125, end: 20110501
  15. VITAMIN D [Concomitant]
  16. ONCOVIN [Suspect]
     Indication: DIFFUSE LARGE B-CELL LYMPHOMA
     Dosage: DOSIS: DOSERES EFTER KURSKEMA HVER 3. UGE
     Route: 042
     Dates: start: 20110125, end: 20110501
  17. FERRO DURETTER [Concomitant]

REACTIONS (2)
  - HEPATITIS B [None]
  - HEPATIC FAILURE [None]
